FAERS Safety Report 9071985 (Version 1)
Quarter: 2013Q1

REPORT INFORMATION
  Report Type: Report from Study
  Country: US (occurrence: US)
  Receive Date: 20130129
  Receipt Date: 20130129
  Transmission Date: 20140127
  Serious: No
  Sender: FDA-Public Use
  Company Number: US-ABBOTT-12P-163-0928185-00

PATIENT
  Age: 22 None
  Sex: Female
  Weight: 70.37 kg

DRUGS (1)
  1. HUMIRA 40 MG/ 0.8 ML PRE-FILLED SYRINGE [Suspect]
     Indication: CROHN^S DISEASE
     Route: 058
     Dates: start: 20120320

REACTIONS (3)
  - Cough [Unknown]
  - Influenza like illness [Unknown]
  - Respiratory tract congestion [Unknown]
